FAERS Safety Report 11067574 (Version 1)
Quarter: 2015Q2

REPORT INFORMATION
  Report Type: Spontaneous
  Country: US (occurrence: None)
  Receive Date: 20150424
  Receipt Date: 20150424
  Transmission Date: 20150821
  Serious: Yes (Hospitalization)
  Sender: FDA-Public Use
  Company Number: None

PATIENT
  Age: 45 Year
  Sex: Female

DRUGS (3)
  1. CELEXA [Concomitant]
     Active Substance: CITALOPRAM HYDROBROMIDE
  2. OTEZLA [Suspect]
     Active Substance: APREMILAST
     Indication: PSORIASIS
     Dosage: 30 MG PO BID
     Route: 048
     Dates: start: 20141104
  3. SORIATANE [Concomitant]
     Active Substance: ACITRETIN

REACTIONS (2)
  - Hypoaesthesia [None]
  - Guillain-Barre syndrome [None]

NARRATIVE: CASE EVENT DATE: 20150402
